FAERS Safety Report 13238642 (Version 4)
Quarter: 2021Q2

REPORT INFORMATION
  Report Type: Spontaneous
  Country: DE (occurrence: DE)
  Receive Date: 20170216
  Receipt Date: 20210526
  Transmission Date: 20210716
  Serious: Yes (Other)
  Sender: FDA-Public Use
  Company Number: DE-ROCHE-1892337

PATIENT
  Age: 59 Year
  Sex: Male
  Weight: 72 kg

DRUGS (12)
  1. OMEPRAZOL [Concomitant]
     Active Substance: OMEPRAZOLE
  2. PALEXIA [Concomitant]
     Active Substance: TAPENTADOL HYDROCHLORIDE
  3. PEGASYS [Suspect]
     Active Substance: PEGINTERFERON ALFA-2A
     Indication: PRODUCT USED FOR UNKNOWN INDICATION
     Dosage: SUBSEQUENTLY RECEIVED ON 02/JAN/2012, 23/JAN/2012, 27/FEB/2012, 26/MAR/2012, 16/APR/012, 07/MAY/2012
     Route: 065
     Dates: start: 20111205
  4. ISENTRESS [Concomitant]
     Active Substance: RALTEGRAVIR POTASSIUM
  5. CITALOPRAM [Concomitant]
     Active Substance: CITALOPRAM HYDROBROMIDE
  6. TRUVADA [Suspect]
     Active Substance: EMTRICITABINE\TENOFOVIR DISOPROXIL FUMARATE
     Indication: PRODUCT USED FOR UNKNOWN INDICATION
     Dosage: ONCE DAILY  200/245 MG
     Route: 065
     Dates: start: 20101229, end: 201407
  7. ZOLPIDEM [Concomitant]
     Active Substance: ZOLPIDEM TARTRATE
  8. ACICLOVIR [Concomitant]
     Active Substance: ACYCLOVIR
  9. PYLERA [Concomitant]
     Active Substance: BISMUTH SUBCITRATE POTASSIUM\METRONIDAZOLE\TETRACYCLINE HYDROCHLORIDE
  10. IBUHEXAL [Concomitant]
     Active Substance: IBUPROFEN
  11. CYMBALTA [Concomitant]
     Active Substance: DULOXETINE HYDROCHLORIDE
  12. COPEGUS [Suspect]
     Active Substance: RIBAVIRIN
     Indication: PRODUCT USED FOR UNKNOWN INDICATION
     Dosage: SUBSEQUENTLY RECEIVED ON  05/DEC/2011, 27?DEC?2011, 16?JAN?2012, 06?FEB?2012, 12?MAR?2012, 02?APR?20
     Route: 065
     Dates: start: 20111127

REACTIONS (31)
  - Gastritis [Unknown]
  - Dyspepsia [Unknown]
  - Acute stress disorder [Unknown]
  - Fatigue [Unknown]
  - Gingival bleeding [Unknown]
  - Gastric disorder [Recovering/Resolving]
  - Epigastric discomfort [Recovering/Resolving]
  - Hypoaesthesia [Unknown]
  - Weight increased [Unknown]
  - Dry throat [Unknown]
  - Epistaxis [Unknown]
  - Pruritus [Unknown]
  - Herpes zoster [Unknown]
  - Flatulence [Unknown]
  - Dermatitis [Unknown]
  - Mood altered [Unknown]
  - Influenza like illness [Unknown]
  - Mood swings [Unknown]
  - Depression [Unknown]
  - General physical condition abnormal [Unknown]
  - Helicobacter test positive [Recovered/Resolved]
  - Sleep disorder [Unknown]
  - Viral load increased [Unknown]
  - Drug eruption [Unknown]
  - Listless [Unknown]
  - Constipation [Unknown]
  - Herpes zoster [Unknown]
  - Dysuria [Unknown]
  - Stress [Unknown]
  - Pain [Unknown]
  - CD4 lymphocytes decreased [Unknown]

NARRATIVE: CASE EVENT DATE: 20101229
